APPROVED DRUG PRODUCT: ETHINYL ESTRADIOL; ETONOGESTREL
Active Ingredient: ETHINYL ESTRADIOL; ETONOGESTREL
Strength: 0.015MG/24HR;0.12MG/24HR
Dosage Form/Route: RING;VAGINAL
Application: A204305 | Product #001 | TE Code: AB
Applicant: TEVA PHARMACEUTICALS USA INC
Approved: Jan 13, 2021 | RLD: No | RS: No | Type: RX